FAERS Safety Report 6326322-5 (Version None)
Quarter: 2009Q3

REPORT INFORMATION
  Report Type: 
  Country: None (occurrence: None)
  Receive Date: 20090821
  Receipt Date: 20090814
  Transmission Date: 20100115
  Serious: Yes (Other)
  Sender: FDA-Public Use
  Company Number: CHPA2009US16750

PATIENT
  Age: 15 Year
  Sex: Female
  Weight: 54.4 kg

DRUGS (1)
  1. EXCEDRIN (MIGRAINE) [Suspect]
     Dosage: 15 DF, ONCE/SINGLE, ORAL
     Route: 048
     Dates: start: 20090807, end: 20090807

REACTIONS (5)
  - NAUSEA [None]
  - OVERDOSE [None]
  - SELF INJURIOUS BEHAVIOUR [None]
  - SELF-INJURIOUS IDEATION [None]
  - TREMOR [None]
